FAERS Safety Report 25037980 (Version 3)
Quarter: 2025Q3

REPORT INFORMATION
  Report Type: Report from Study
  Country: US (occurrence: US)
  Receive Date: 20250304
  Receipt Date: 20250803
  Transmission Date: 20251020
  Serious: Yes (Hospitalization, Other)
  Sender: ALEXION PHARMACEUTICALS
  Company Number: US-AstraZeneca-CH-00815108A

PATIENT
  Sex: Female

DRUGS (1)
  1. ULTOMIRIS [Suspect]
     Active Substance: RAVULIZUMAB-CWVZ
     Route: 065

REACTIONS (8)
  - Memory impairment [Unknown]
  - Thought blocking [Recovered/Resolved]
  - Confusional state [Not Recovered/Not Resolved]
  - Pruritus [Recovered/Resolved]
  - Insomnia [Recovered/Resolved]
  - Swelling [Recovered/Resolved]
  - Dry eye [Recovered/Resolved]
  - Vision blurred [Unknown]
